FAERS Safety Report 5538369-7 (Version None)
Quarter: 2007Q4

REPORT INFORMATION
  Report Type: 
  Country: None (occurrence: None)
  Receive Date: 20071205
  Receipt Date: 20071119
  Transmission Date: 20080405
  Serious: Yes (Hospitalization)
  Sender: FDA-Public Use
  Company Number: 002#8#2007-00346

PATIENT
  Age: 57 Year
  Sex: Female

DRUGS (13)
  1. ALPRAZOLAM-DOSE-UNKNOWN-ORALLY-DISINTEGRATING-TABLETS(ALPRAZOLAM) [Suspect]
  2. ORLISTAT [Suspect]
     Dosage: 120MG, 3 IN 1 D,
  3. DILTIAZEM [Concomitant]
  4. FUROSEMIDE [Concomitant]
  5. MONTELUKAST SODIUM [Concomitant]
  6. PANTOPRAZOLE SODIUM [Concomitant]
  7. PAROXETINE [Concomitant]
  8. GLIMEPIRIDE [Concomitant]
  9. ALBUTEROL [Concomitant]
  10. IPRATROPIUM BROMIDE [Concomitant]
  11. COLCHICINE [Concomitant]
  12. CALCITRIOL [Concomitant]
  13. LEVOTHYROXINE SODIUM [Concomitant]

REACTIONS (3)
  - CRYSTAL URINE PRESENT [None]
  - NEPHROPATHY TOXIC [None]
  - RENAL INJURY [None]
